FAERS Safety Report 5649405-1 (Version None)
Quarter: 2008Q1

REPORT INFORMATION
  Report Type: 
  Country: None (occurrence: None)
  Receive Date: 20080131
  Receipt Date: 20071211
  Transmission Date: 20080703
  Serious: Yes (Other)
  Sender: FDA-Public Use
  Company Number: US200711002695

PATIENT
  Age: 42 Year
  Sex: Male

DRUGS (5)
  1. BYETTA [Suspect]
     Dosage: 5 UG, SUBCUTANEOUS ; 5 UG, SUBCUTANEOUS
     Route: 058
     Dates: start: 20070223, end: 20070101
  2. BYETTA [Suspect]
     Dosage: 5 UG, SUBCUTANEOUS ; 5 UG, SUBCUTANEOUS
     Route: 058
     Dates: start: 20071022, end: 20071022
  3. METFORMIN HCL [Concomitant]
  4. LISINOPRIL [Concomitant]
  5. HYDROCHLOROTHIAZIDE [Concomitant]

REACTIONS (2)
  - DRUG HYPERSENSITIVITY [None]
  - NAUSEA [None]
